FAERS Safety Report 23727781 (Version 1)
Quarter: 2024Q2

REPORT INFORMATION
  Report Type: Report from Study
  Country: US (occurrence: US)
  Receive Date: 20240410
  Receipt Date: 20240410
  Transmission Date: 20240716
  Serious: Yes (Other)
  Sender: FDA-Public Use
  Company Number: US-Eisai-EC-2023-153733

PATIENT
  Age: 54 Year
  Sex: Female

DRUGS (2)
  1. LENVIMA [Suspect]
     Active Substance: LENVATINIB
     Indication: Product used for unknown indication
     Dosage: THERAPY STARTED AROUND MAR-2023 OR APR-2023.
     Route: 048
     Dates: start: 202301
  2. LENVIMA [Suspect]
     Active Substance: LENVATINIB
     Dosage: THERAPY STARTED AROUND MAR-2023 OR APR-2023.
     Route: 048

REACTIONS (2)
  - Cardiac failure [Unknown]
  - Hypertension [Unknown]

NARRATIVE: CASE EVENT DATE: 20230101
